FAERS Safety Report 6656455-5 (Version None)
Quarter: 2010Q1

REPORT INFORMATION
  Report Type: 
  Country: None (occurrence: None)
  Receive Date: 20100329
  Receipt Date: 20100317
  Transmission Date: 20100710
  Serious: Yes (Other)
  Sender: FDA-Public Use
  Company Number: AU-WYE-G05766210

PATIENT
  Age: 31 Year
  Sex: Female

DRUGS (2)
  1. PRISTIQ [Suspect]
     Indication: DEPRESSION
     Dosage: 50MG DAILY
     Route: 048
     Dates: start: 20100111, end: 20100112
  2. PRISTIQ [Suspect]
     Indication: ANXIETY

REACTIONS (5)
  - DIZZINESS [None]
  - FACE INJURY [None]
  - FALL [None]
  - MIDDLE INSOMNIA [None]
  - SKIN LACERATION [None]
